FAERS Safety Report 4464560-7 (Version None)
Quarter: 2004Q3

REPORT INFORMATION
  Report Type: 
  Country: None (occurrence: None)
  Receive Date: 20040929
  Receipt Date: 20040916
  Transmission Date: 20050211
  Serious: No
  Sender: FDA-Public Use
  Company Number: MC200400459

PATIENT
  Age: 47 Year
  Sex: Male
  Weight: 79.4 kg

DRUGS (14)
  1. ANGIOMAX [Suspect]
     Dosage: SEE IMAGE
     Route: 040
     Dates: start: 20040716, end: 20040716
  2. ANGIOMAX [Suspect]
     Dosage: SEE IMAGE
     Route: 040
     Dates: start: 20040716, end: 20040716
  3. XYLOCAINE (LIDOCAINE HYDROCHLORIDE0 [Concomitant]
  4. ACETYLSALICYLIC ACID SRT [Concomitant]
  5. NGT (GLYCERYL TRINITRATE) [Concomitant]
  6. SODIUM CHLORIDE [Concomitant]
  7. PLAVIX [Concomitant]
  8. SUBLIMAZE (FENTANYL) [Concomitant]
  9. VERSED (MIDAZOLAM HYDROCHORIDE) [Concomitant]
  10. ANCEF [Concomitant]
  11. DOPAMINE HCL [Concomitant]
  12. LASIX  /ISCH/ (FUROSEMIDE, FUROSEMIDE SODIUM) [Concomitant]
  13. SODIUM CHLORIDE [Concomitant]
  14. REOPRO [Concomitant]

REACTIONS (4)
  - CARDIAC TAMPONADE [None]
  - HYPOTENSION [None]
  - PERICARDIAL RUB [None]
  - POST PROCEDURAL COMPLICATION [None]
